FAERS Safety Report 21185259 (Version 1)
Quarter: 2022Q3

REPORT INFORMATION
  Report Type: Spontaneous
  Country: US (occurrence: None)
  Receive Date: 20220808
  Receipt Date: 20220808
  Transmission Date: 20221026
  Serious: Yes (Other)
  Sender: FDA-Public Use
  Company Number: None

PATIENT
  Age: 69 Year
  Sex: Female

DRUGS (1)
  1. FULVESTRANT [Suspect]
     Active Substance: FULVESTRANT
     Indication: HER2 positive breast cancer
     Dosage: OTHER FREQUENCY : MONTHLY;?
     Route: 030

REACTIONS (4)
  - Injection site pain [None]
  - Injection site ulcer [None]
  - Skin infection [None]
  - Soft tissue infection [None]

NARRATIVE: CASE EVENT DATE: 20220804
